FAERS Safety Report 22274419 (Version 1)
Quarter: 2023Q2

REPORT INFORMATION
  Report Type: Spontaneous
  Country: JP (occurrence: JP)
  Receive Date: 20230502
  Receipt Date: 20230502
  Transmission Date: 20230721
  Serious: Yes (Hospitalization, Other)
  Sender: FDA-Public Use
  Company Number: JP-PFIZER INC-PV202300074715

PATIENT
  Age: 84 Year
  Sex: Male

DRUGS (2)
  1. BEVACIZUMAB [Suspect]
     Active Substance: BEVACIZUMAB
     Indication: Hepatocellular carcinoma
     Dosage: STANDARD DOSE ONCE EVERY 3 WEEKS; AFTER 6 WEEKS
  2. ATEZOLIZUMAB [Suspect]
     Active Substance: ATEZOLIZUMAB
     Indication: Hepatocellular carcinoma
     Dosage: STANDARD DOSE ONCE EVERY 3 WEEKS; AFTER 6 WEEKS

REACTIONS (2)
  - Polymyalgia rheumatica [Recovered/Resolved]
  - Off label use [Recovered/Resolved]
